FAERS Safety Report 25981978 (Version 3)
Quarter: 2025Q4

REPORT INFORMATION
  Report Type: Spontaneous
  Country: JP (occurrence: JP)
  Receive Date: 20251031
  Receipt Date: 20251221
  Transmission Date: 20260117
  Serious: Yes (Other)
  Sender: NOVARTIS
  Company Number: JP-002147023-NVSJ2025JP010633

PATIENT
  Age: 57 Year
  Sex: Female
  Weight: 55.6 kg

DRUGS (16)
  1. ENTRESTO [Suspect]
     Active Substance: SACUBITRIL\VALSARTAN
     Indication: Hypertension
     Dosage: TAKE 100 MG (AS A HALF DOSE OF 200MG), AND AFTER SYNCOPE, RE-ADMINISTER 100 MG
     Route: 048
     Dates: start: 20251029, end: 20251029
  2. RHEUMATREX [Concomitant]
     Active Substance: METHOTREXATE SODIUM
     Indication: Rheumatoid arthritis
     Dosage: 2 MG, BID
     Route: 048
     Dates: start: 2020
  3. FOLIC ACID [Concomitant]
     Active Substance: FOLIC ACID
     Indication: Chemotherapy side effect prophylaxis
     Dosage: 5 MG, QD
     Route: 048
     Dates: start: 2020
  4. EPHEDRA SINICA STEM\HERBALS [Concomitant]
     Active Substance: EPHEDRA SINICA STEM\HERBALS
     Indication: Product used for unknown indication
     Dosage: 6 DOSAGE FORM, TID
     Route: 048
     Dates: start: 2020
  5. HERBALS [Concomitant]
     Active Substance: HERBALS
     Indication: Product used for unknown indication
     Dosage: 3.75 MG, TID
     Route: 048
     Dates: start: 202212
  6. HERBALS [Concomitant]
     Active Substance: HERBALS
     Indication: Product used for unknown indication
     Dosage: 2.5 MG, TID
     Route: 048
     Dates: start: 202509
  7. HERBALS [Concomitant]
     Active Substance: HERBALS
     Indication: Product used for unknown indication
     Dosage: 2.5 G, TID
     Route: 048
     Dates: start: 202511, end: 20251114
  8. REBAMIPIDE [Concomitant]
     Active Substance: REBAMIPIDE
     Indication: Product used for unknown indication
     Dosage: 100 MG, TID
     Route: 065
     Dates: start: 201407
  9. LEVOTHYROXINE SODIUM [Concomitant]
     Active Substance: LEVOTHYROXINE SODIUM
     Indication: Product used for unknown indication
     Dosage: 50 UG, QD
     Route: 065
     Dates: start: 201407
  10. Alinamin [Concomitant]
     Indication: Product used for unknown indication
     Dosage: 25 MG, TID
     Route: 065
     Dates: start: 201007
  11. CINAL [Concomitant]
     Indication: Product used for unknown indication
     Dosage: UNK
     Route: 065
     Dates: start: 201007
  12. METHYLCOBALAMIN [Concomitant]
     Active Substance: METHYLCOBALAMIN
     Indication: Product used for unknown indication
     Dosage: 500 UG, TID
     Route: 065
     Dates: start: 2022
  13. ENBREL [Concomitant]
     Active Substance: ETANERCEPT
     Indication: Rheumatoid arthritis
     Dosage: 25 MG, QW2
     Route: 058
     Dates: start: 2022
  14. CALONAL [Concomitant]
     Active Substance: ACETAMINOPHEN
     Indication: Product used for unknown indication
     Dosage: 300 MG, TID
     Route: 065
     Dates: start: 2022
  15. LANSOPRAZOLE [Concomitant]
     Active Substance: LANSOPRAZOLE
     Indication: Product used for unknown indication
     Dosage: 15 MG, BID
     Route: 048
     Dates: start: 2022
  16. BROMAZEPAM [Concomitant]
     Active Substance: BROMAZEPAM
     Indication: Product used for unknown indication
     Dosage: 5 MG, QD
     Route: 065
     Dates: start: 2022

REACTIONS (10)
  - Syncope [Recovered/Resolved]
  - Syncope [Recovering/Resolving]
  - Pharyngeal swelling [Recovering/Resolving]
  - Dyspnoea [Recovering/Resolving]
  - Dizziness [Recovering/Resolving]
  - Hypoaesthesia [Recovering/Resolving]
  - Dysstasia [Unknown]
  - Feeling cold [Recovering/Resolving]
  - Nausea [Recovering/Resolving]
  - Inappropriate schedule of product administration [Unknown]

NARRATIVE: CASE EVENT DATE: 20251029
